FAERS Safety Report 20485465 (Version 1)
Quarter: 2022Q1

REPORT INFORMATION
  Report Type: Spontaneous
  Country: US (occurrence: None)
  Receive Date: 20220217
  Receipt Date: 20220217
  Transmission Date: 20220423
  Serious: Yes (Hospitalization)
  Sender: FDA-Public Use
  Company Number: None

PATIENT
  Age: 29 Year
  Sex: Male
  Weight: 57.15 kg

DRUGS (6)
  1. HERBALS\MITRAGYNINE [Suspect]
     Active Substance: HERBALS\MITRAGYNINE
     Indication: Attention deficit hyperactivity disorder
  2. HERBALS\MITRAGYNINE [Suspect]
     Active Substance: HERBALS\MITRAGYNINE
     Indication: Bipolar disorder
  3. HERBALS\MITRAGYNINE [Suspect]
     Active Substance: HERBALS\MITRAGYNINE
     Indication: Substance abuse
  4. DEPEKOTE [Concomitant]
  5. ABILIFY [Concomitant]
     Active Substance: ARIPIPRAZOLE
  6. ADDERALL [Concomitant]
     Active Substance: AMPHETAMINE ASPARTATE\AMPHETAMINE SULFATE\DEXTROAMPHETAMINE SACCHARATE\DEXTROAMPHETAMINE SULFATE

REACTIONS (11)
  - Psychotic disorder [None]
  - Mania [None]
  - Drug dependence [None]
  - Withdrawal syndrome [None]
  - Impaired quality of life [None]
  - Neuralgia [None]
  - Restless legs syndrome [None]
  - Hostility [None]
  - Vomiting [None]
  - Hyperhidrosis [None]
  - Drug dependence [None]

NARRATIVE: CASE EVENT DATE: 20211126
